FAERS Safety Report 7409989-X (Version None)
Quarter: 2011Q2

REPORT INFORMATION
  Report Type: 
  Country: None (occurrence: None)
  Receive Date: 20110412
  Receipt Date: 20110406
  Transmission Date: 20111010
  Serious: Yes (Other)
  Sender: FDA-Public Use
  Company Number: US-PFIZER INC-2011076883

PATIENT
  Sex: Female

DRUGS (5)
  1. HALDOL [Concomitant]
     Dosage: UNK
  2. DILANTIN-125 [Suspect]
     Indication: CONVULSION
     Dosage: UNK
     Route: 048
     Dates: start: 20091201, end: 20100301
  3. ATENOLOL [Concomitant]
     Dosage: UNK
  4. OXYCODONE [Concomitant]
     Indication: PAIN
     Dosage: UNK
  5. ATIVAN [Concomitant]
     Dosage: UNK

REACTIONS (2)
  - DRUG INEFFECTIVE [None]
  - CONVULSION [None]
